FAERS Safety Report 10586179 (Version 1)
Quarter: 2014Q4

REPORT INFORMATION
  Report Type: Spontaneous
  Country: CH (occurrence: CH)
  Receive Date: 20141116
  Receipt Date: 20141116
  Transmission Date: 20150529
  Serious: Yes (Hospitalization)
  Sender: FDA-Public Use
  Company Number: PHHY2014CH145469

PATIENT
  Age: 77 Year
  Sex: Male
  Weight: 78 kg

DRUGS (9)
  1. DIGOXIN. [Interacting]
     Active Substance: DIGOXIN
     Dosage: 0.25 MG, QD
     Route: 048
     Dates: start: 201410
  2. PARACETAMOL [Concomitant]
     Active Substance: ACETAMINOPHEN
     Dosage: 1 G, UNK
  3. BELOC-ZOK COMP [Interacting]
     Active Substance: HYDROCHLOROTHIAZIDE\METOPROLOL SUCCINATE
     Dosage: 100 MG, TID
     Route: 048
     Dates: start: 201410
  4. CORDARONE [Interacting]
     Active Substance: AMIODARONE HYDROCHLORIDE
     Dosage: 200 MG, BID
     Route: 048
     Dates: start: 20141001, end: 20141013
  5. DIGOXIN. [Suspect]
     Active Substance: DIGOXIN
     Indication: ATRIAL FIBRILLATION
     Dosage: 0.125 MG, EVERY 2 DAY
     Dates: start: 20140919
  6. DILZEM [Interacting]
     Active Substance: DILTIAZEM
     Dosage: 90 MG, TID
     Route: 048
     Dates: start: 20140915
  7. CUBICIN [Concomitant]
     Active Substance: DAPTOMYCIN
     Dosage: 500 MG, QD
     Route: 040
     Dates: start: 201410, end: 20141015
  8. PRIMPERAN [Concomitant]
     Active Substance: METOCLOPRAMIDE HYDROCHLORIDE
     Dosage: 10 MG, TID
     Route: 048
     Dates: start: 201410
  9. VALACICLOVIR [Concomitant]
     Active Substance: VALACYCLOVIR HYDROCHLORIDE
     Dosage: 250 MG, QD
     Route: 048

REACTIONS (10)
  - Poisoning [Recovering/Resolving]
  - Dehydration [Unknown]
  - Visual impairment [Unknown]
  - Bradycardia [Unknown]
  - Drug prescribing error [Recovered/Resolved]
  - Decreased appetite [Unknown]
  - Nausea [Unknown]
  - Asthenia [Unknown]
  - Acute kidney injury [Recovering/Resolving]
  - Confusional state [Not Recovered/Not Resolved]

NARRATIVE: CASE EVENT DATE: 201410
